FAERS Safety Report 16319648 (Version 2)
Quarter: 2020Q3

REPORT INFORMATION
  Report Type: Spontaneous
  Country: US (occurrence: US)
  Receive Date: 20190516
  Receipt Date: 20200825
  Transmission Date: 20201102
  Serious: Yes (Other)
  Sender: FDA-Public Use
  Company Number: US-AKORN PHARMACEUTICALS-2019AKN01020

PATIENT
  Age: 16 Year
  Sex: Female
  Weight: 58.96 kg

DRUGS (9)
  1. LO LOESTRIN FE [Concomitant]
     Active Substance: ETHINYL ESTRADIOL\NORETHINDRONE ACETATE
     Dosage: 10 ?G, 1X/DAY
  2. MYORISAN [Suspect]
     Active Substance: ISOTRETINOIN
     Dosage: UNK
     Dates: start: 20191220, end: 2020
  3. MYORISAN [Suspect]
     Active Substance: ISOTRETINOIN
     Dosage: UNK
     Dates: start: 20200123, end: 2020
  4. LEXAPRO [Suspect]
     Active Substance: ESCITALOPRAM OXALATE
     Dosage: ^DOSE INCREASED^
     Dates: start: 2019
  5. BUSPIRONE [Suspect]
     Active Substance: BUSPIRONE HYDROCHLORIDE
     Dosage: 5 MG, 3X/DAY
     Dates: end: 2019
  6. BUSPIRONE [Suspect]
     Active Substance: BUSPIRONE HYDROCHLORIDE
     Dosage: ^DOSE INCREASED^
     Dates: start: 2019
  7. METHYLFOLATE [Concomitant]
     Active Substance: LEVOMEFOLATE CALCIUM
     Dosage: 400 ?G, 1X/DAY
  8. MYORISAN [Suspect]
     Active Substance: ISOTRETINOIN
     Indication: ACNE
     Dosage: 20 MG, 1X/DAY
     Route: 048
     Dates: start: 20190402, end: 20190419
  9. LEXAPRO [Suspect]
     Active Substance: ESCITALOPRAM OXALATE
     Dosage: 5 MG, 1X/DAY
     Dates: end: 2019

REACTIONS (4)
  - Unevaluable event [Unknown]
  - Off label use [Recovered/Resolved]
  - Intentional self-injury [Recovered/Resolved]
  - Underdose [Recovered/Resolved]

NARRATIVE: CASE EVENT DATE: 20190402
